FAERS Safety Report 16542025 (Version 2)
Quarter: 2019Q3

REPORT INFORMATION
  Report Type: Spontaneous
  Country: ZA (occurrence: ZA)
  Receive Date: 20190708
  Receipt Date: 20190710
  Transmission Date: 20191004
  Serious: Yes (Other)
  Sender: FDA-Public Use
  Company Number: ZA-ANIPHARMA-2019-ZA-000002

PATIENT
  Sex: Female

DRUGS (1)
  1. CASODEX [Suspect]
     Active Substance: BICALUTAMIDE
     Indication: PRODUCT USED FOR UNKNOWN INDICATION
     Dosage: UNK
     Route: 048

REACTIONS (5)
  - Neoplasm progression [Unknown]
  - Metastases to chest wall [Unknown]
  - Product use issue [Unknown]
  - Metastases to liver [Unknown]
  - Tumour marker increased [Unknown]
